FAERS Safety Report 25220510 (Version 1)
Quarter: 2025Q2

REPORT INFORMATION
  Report Type: Spontaneous
  Country: JP (occurrence: JP)
  Receive Date: 20250421
  Receipt Date: 20250421
  Transmission Date: 20250716
  Serious: Yes (Hospitalization)
  Sender: ELI LILLY AND COMPANY
  Company Number: JP-ELI_LILLY_AND_COMPANY-JP202504008869

PATIENT
  Age: 84 Year
  Sex: Male
  Weight: 65.7 kg

DRUGS (14)
  1. CYRAMZA [Suspect]
     Active Substance: RAMUCIRUMAB
     Indication: Lung adenocarcinoma stage III
     Route: 041
     Dates: start: 20240927, end: 20240927
  2. DOCETAXEL [Suspect]
     Active Substance: DOCETAXEL
     Indication: Lung adenocarcinoma stage III
     Route: 041
     Dates: start: 20240927, end: 20240927
  3. SENNOSIDES [Concomitant]
     Active Substance: SENNOSIDES
     Dosage: 12 MG, DAILY
     Route: 065
  4. MAGNESIUM OXIDE [Concomitant]
     Active Substance: MAGNESIUM OXIDE
     Dosage: 330 MG, BID
     Route: 065
  5. DUTASTERIDE [Concomitant]
     Active Substance: DUTASTERIDE
     Dosage: 0.5 MG, DAILY
     Route: 065
  6. AMITIZA [Concomitant]
     Active Substance: LUBIPROSTONE
     Dosage: 24 UG, BID
     Route: 065
  7. RIVAROXABAN [Concomitant]
     Active Substance: RIVAROXABAN
     Dosage: 15 MG, DAILY
     Route: 065
  8. HERBALS [Concomitant]
     Active Substance: HERBALS
     Dosage: 2.5 G, BID
     Route: 065
  9. ANGIOTENSINA II [Concomitant]
     Dosage: 25 MG, DAILY
     Route: 065
  10. SILODOSIN [Concomitant]
     Active Substance: SILODOSIN
     Dosage: 4 MG, DAILY
     Route: 065
  11. INDACATEROL [Concomitant]
     Active Substance: INDACATEROL
     Dosage: 150 UG, DAILY
     Route: 055
  12. TRESIBA [Concomitant]
     Active Substance: INSULIN DEGLUDEC
     Dosage: UNK, DAILY
     Route: 065
  13. INSULIN ASPART [Concomitant]
     Active Substance: INSULIN ASPART
     Dosage: UNK, TID
     Route: 065
  14. PURIFIED WATER [Concomitant]
     Active Substance: WATER
     Route: 047

REACTIONS (1)
  - Interstitial lung disease [Recovered/Resolved]

NARRATIVE: CASE EVENT DATE: 20241010
